FAERS Safety Report 7861283-9 (Version None)
Quarter: 2011Q4

REPORT INFORMATION
  Report Type: 
  Country: None (occurrence: None)
  Receive Date: 20111027
  Receipt Date: 20111018
  Transmission Date: 20120403
  Serious: Yes (Hospitalization)
  Sender: FDA-Public Use
  Company Number: US-BAYER-2011-017399

PATIENT
  Age: 29 Year
  Sex: Female
  Weight: 104.31 kg

DRUGS (5)
  1. IBUPROFEN [Concomitant]
     Dosage: UNK
     Dates: start: 20080101
  2. PAXIL [Concomitant]
     Indication: PANIC ATTACK
     Dosage: UNK UNK, QD
     Route: 048
  3. NAPROXEN [Concomitant]
  4. YAZ [Suspect]
     Indication: ACNE
     Dosage: UNK UNK, QD
     Route: 048
     Dates: start: 20090101, end: 20091201
  5. IBUPROFEN (ADVIL) [Concomitant]
     Dosage: UNK
     Dates: start: 19920101

REACTIONS (3)
  - PAIN [None]
  - GALLBLADDER DISORDER [None]
  - CHOLECYSTITIS CHRONIC [None]
